FAERS Safety Report 5635700-9 (Version None)
Quarter: 2008Q1

REPORT INFORMATION
  Report Type: 
  Country: None (occurrence: None)
  Receive Date: 20080220
  Receipt Date: 20080211
  Transmission Date: 20080703
  Serious: Yes (Hospitalization)
  Sender: FDA-Public Use
  Company Number: 2008AL000744

PATIENT
  Age: 35 Year
  Sex: Female

DRUGS (2)
  1. PROPYLTHIOURACIL TAB [Suspect]
     Indication: HYPERTHYROIDISM
     Dosage: 250 MG; PO
     Route: 048
     Dates: start: 20010101, end: 20050101
  2. THIAMAZOLE [Concomitant]

REACTIONS (19)
  - ANTINEUTROPHIL CYTOPLASMIC ANTIBODY INCREASED [None]
  - ANTINEUTROPHIL CYTOPLASMIC ANTIBODY POSITIVE [None]
  - ARTHRALGIA [None]
  - COMPUTERISED TOMOGRAM ABNORMAL [None]
  - COUGH [None]
  - DRUG EXPOSURE DURING PREGNANCY [None]
  - DYSPNOEA [None]
  - HAEMATURIA [None]
  - HEART RATE INCREASED [None]
  - HYPOCHROMIC ANAEMIA [None]
  - OEDEMA PERIPHERAL [None]
  - PROTEINURIA [None]
  - PULMONARY ALVEOLAR HAEMORRHAGE [None]
  - PYREXIA [None]
  - RALES [None]
  - RESPIRATORY FAILURE [None]
  - RESPIRATORY RATE INCREASED [None]
  - URINARY CASTS [None]
  - WHITE BLOOD CELL COUNT DECREASED [None]
